FAERS Safety Report 6332984-9 (Version None)
Quarter: 2009Q3

REPORT INFORMATION
  Report Type: 
  Country: None (occurrence: None)
  Receive Date: 20090828
  Receipt Date: 20090818
  Transmission Date: 20100115
  Serious: Yes (Hospitalization)
  Sender: FDA-Public Use
  Company Number: PHHY2009NZ30606

PATIENT
  Sex: Female

DRUGS (3)
  1. CLOZARIL [Suspect]
     Indication: SCHIZOPHRENIA
     Dosage: 275 MG AT NIGHT
     Route: 048
     Dates: start: 20001120, end: 20090719
  2. LITHIUM CARBONATE [Concomitant]
     Dosage: 250 MG, BID
     Dates: end: 20090719
  3. ASPIRIN [Concomitant]

REACTIONS (4)
  - ACUTE MYOCARDIAL INFARCTION [None]
  - PNEUMONIA [None]
  - PULMONARY OEDEMA [None]
  - SYNCOPE [None]
